FAERS Safety Report 18765894 (Version 1)
Quarter: 2021Q1

REPORT INFORMATION
  Report Type: Report from Study
  Country: BG (occurrence: BG)
  Receive Date: 20210120
  Receipt Date: 20210120
  Transmission Date: 20210419
  Serious: Yes (Hospitalization)
  Sender: FDA-Public Use
  Company Number: BG-JNJFOC-20190925450

PATIENT
  Age: 54 Year
  Sex: Female
  Weight: 58 kg

DRUGS (12)
  1. LACTOFLORENE [Concomitant]
     Route: 048
     Dates: start: 20190909
  2. ADALIMUMAB [Suspect]
     Active Substance: ADALIMUMAB
     Indication: CROHN^S DISEASE
     Route: 058
     Dates: start: 20190527
  3. LACTOFLORENE [Concomitant]
     Route: 048
     Dates: start: 20190905
  4. SILYMARIN [Concomitant]
     Active Substance: DIETARY SUPPLEMENT\HERBALS\MILK THISTLE
  5. FAMOTIDINE. [Concomitant]
     Active Substance: FAMOTIDINE
     Route: 042
     Dates: start: 20191029, end: 20191101
  6. ADEMETIONINE [Concomitant]
     Active Substance: ADEMETIONINE
     Route: 042
     Dates: start: 20191020, end: 20191025
  7. CYNARIX                            /00561507/ [Concomitant]
     Dosage: TAKEN REGULARLY
     Route: 048
     Dates: start: 2018
  8. ESOMEPRAZOLE. [Concomitant]
     Active Substance: ESOMEPRAZOLE MAGNESIUM
     Dosage: TAKEN REGULARLY
     Route: 048
     Dates: start: 2018
  9. CIPROFLOXACIN. [Concomitant]
     Active Substance: CIPROFLOXACIN
     Route: 042
     Dates: start: 20191029, end: 20191101
  10. GLUCOSE 5% BRAUN [Concomitant]
     Active Substance: DEXTROSE
     Route: 042
     Dates: start: 20191020, end: 20191025
  11. BUDESONIDE. [Concomitant]
     Active Substance: BUDESONIDE
     Indication: CROHN^S DISEASE
     Route: 048
     Dates: start: 20181211, end: 20190802
  12. TRANSMETIL [Concomitant]
     Active Substance: ADEMETIONINE

REACTIONS (2)
  - Cholecystitis chronic [Not Recovered/Not Resolved]
  - Bile duct stone [Recovered/Resolved]

NARRATIVE: CASE EVENT DATE: 20190909
